FAERS Safety Report 8294767-2 (Version None)
Quarter: 2012Q2

REPORT INFORMATION
  Report Type: 
  Country: None (occurrence: None)
  Receive Date: 20120418
  Receipt Date: 20120105
  Transmission Date: 20120825
  Serious: No
  Sender: FDA-Public Use
  Company Number: US-MYLANLABS-2012S1000590

PATIENT
  Sex: Female

DRUGS (1)
  1. VERAPAMIL HYDROCHLORIDE [Suspect]
     Indication: SINUS TACHYCARDIA
     Route: 048
     Dates: start: 20111201, end: 20111201

REACTIONS (4)
  - MUSCLE FATIGUE [None]
  - FEELING COLD [None]
  - HEADACHE [None]
  - DIZZINESS [None]
